FAERS Safety Report 8766715 (Version 2)
Quarter: 2012Q4

REPORT INFORMATION
  Report Type: 
  Country: JP (occurrence: JP)
  Receive Date: 20120904
  Receipt Date: 20121025
  Transmission Date: 20130627
  Serious: Yes (Other)
  Sender: FDA-Public Use
  Company Number: JP-JNJFOC-20120900051

PATIENT
  Age: 48 Year
  Sex: Female

DRUGS (3)
  1. TRAMCET [Suspect]
     Indication: PAIN
     Route: 048
     Dates: start: 20120824
  2. CYTOTEC [Concomitant]
     Indication: FIBROMYALGIA
     Route: 048
  3. VOLTAREN [Concomitant]
     Indication: FIBROMYALGIA
     Route: 065

REACTIONS (3)
  - Mucous stools [Recovered/Resolved]
  - Haematochezia [Recovered/Resolved]
  - Haematuria [Recovered/Resolved]
